FAERS Safety Report 24408369 (Version 1)
Quarter: 2024Q4

REPORT INFORMATION
  Report Type: Spontaneous
  Country: US (occurrence: US)
  Receive Date: 20241007
  Receipt Date: 20241007
  Transmission Date: 20250115
  Serious: No
  Sender: JOHNSON AND JOHNSON
  Company Number: US-JNJFOC-20241001244

PATIENT
  Sex: Female

DRUGS (22)
  1. IMODIUM [Suspect]
     Active Substance: LOPERAMIDE HYDROCHLORIDE
     Indication: Diarrhoea
     Dosage: 1 TABLET
     Route: 065
  2. REVLIMID [Concomitant]
     Active Substance: LENALIDOMIDE
     Indication: Neoplasm malignant
     Dosage: TAKES ONE 10MG TABLET PER DAY FOR 21 DAYS ON AND 7 DAYS OFF
     Route: 065
     Dates: start: 202303
  3. DARATUMUMAB [Concomitant]
     Active Substance: DARATUMUMAB
     Indication: Chemotherapy
     Dosage: ONE INJECTION ONCE EVERY FOUR WEEKS
     Route: 065
     Dates: start: 2023
  4. COMIRNATY [Concomitant]
     Indication: Product used for unknown indication
     Dosage: 30MCG/0.3ML GIVEN IN THE LEFT ARM
     Route: 065
     Dates: start: 20240913
  5. CALTRATE [Concomitant]
     Active Substance: CALCIUM CARBONATE
     Indication: Osteoporosis prophylaxis
     Dosage: 600MG PLUS D3 THE MINERAL TWICE PER DAY SO 1200MG PER DAY
     Route: 065
  6. CALTRATE [Concomitant]
     Active Substance: CALCIUM CARBONATE
     Indication: Osteoporosis
  7. CALTRATE [Concomitant]
     Active Substance: CALCIUM CARBONATE
     Indication: Osteopenia
  8. MINERALS\VITAMINS [Concomitant]
     Active Substance: MINERALS\VITAMINS
     Indication: Product used for unknown indication
     Dosage: TAKES ONE TABLET IN THE MORNING
     Route: 065
  9. METOPROLOL SUCCINATE [Concomitant]
     Active Substance: METOPROLOL SUCCINATE
     Indication: Blood pressure measurement
     Dosage: 50MG ONE TABLET DAILY
     Route: 065
     Dates: start: 202308
  10. OMEPRAZOLE [Concomitant]
     Active Substance: OMEPRAZOLE
     Indication: Antacid therapy
     Dosage: 40MG ONE TABLET IN THE MORNING
     Route: 065
  11. VENLAFAXINE [Concomitant]
     Active Substance: VENLAFAXINE HYDROCHLORIDE
     Indication: Menopause
     Dosage: 37.5MG ONE TABLET IN THE EVENING
     Route: 065
  12. SIMVASTATIN [Concomitant]
     Active Substance: SIMVASTATIN
     Indication: Blood cholesterol increased
     Dosage: 20MG ONE TABLET IN THE EVENING
     Route: 065
  13. PROLIA [Concomitant]
     Active Substance: DENOSUMAB
     Indication: Plasma cell myeloma
     Dosage: 60MG; ONE INJECTION TWICE PER YEAR
     Route: 065
  14. PROLIA [Concomitant]
     Active Substance: DENOSUMAB
     Indication: Prophylaxis
  15. RESTASIS [Concomitant]
     Active Substance: CYCLOSPORINE
     Indication: Dry eye
     Dosage: ONE DROP PER EYE TWICE A DAY
     Route: 065
  16. ACYCLOVIR [Concomitant]
     Active Substance: ACYCLOVIR
     Indication: Antiviral prophylaxis
     Dosage: 400MG TWO TIMES PER DAY
     Route: 065
     Dates: start: 202403
  17. XARELTO [Concomitant]
     Active Substance: RIVAROXABAN
     Indication: Thrombosis prophylaxis
     Dosage: 10MG ONE PER DAY
     Route: 065
  18. TYLENOL EXTRA STRENGTH [Concomitant]
     Active Substance: ACETAMINOPHEN
     Indication: Headache
     Route: 065
  19. CHLOR-TRIMETON [Concomitant]
     Active Substance: CHLORPHENIRAMINE MALEATE
     Indication: Seasonal allergy
     Dosage: 4MG AS NEEDED, ONE TABLE EVERY FOUR HOURS AS NEEDED
     Route: 065
  20. BENADRYL [Concomitant]
     Active Substance: DIPHENHYDRAMINE HYDROCHLORIDE
     Route: 065
  21. FLONASE [Concomitant]
     Active Substance: FLUTICASONE PROPIONATE
     Indication: Multiple allergies
  22. MIRALAX [Concomitant]
     Active Substance: POLYETHYLENE GLYCOL 3350
     Indication: Constipation
     Dosage: AS NEEDED
     Route: 065

REACTIONS (3)
  - Product use in unapproved indication [Unknown]
  - Incorrect dose administered [Unknown]
  - Constipation [Unknown]
